FAERS Safety Report 7287762-3 (Version None)
Quarter: 2011Q1

REPORT INFORMATION
  Report Type: 
  Country: None (occurrence: None)
  Receive Date: 20110211
  Receipt Date: 20110201
  Transmission Date: 20110831
  Serious: Yes (Other)
  Sender: FDA-Public Use
  Company Number: US-JNJFOC-20110202375

PATIENT
  Sex: Male

DRUGS (2)
  1. REGRANEX [Suspect]
     Indication: SKIN IRRITATION
     Route: 061
  2. REGRANEX [Suspect]
     Dosage: ON FOR 12 HOURS AND OFF 12HOURS
     Route: 061

REACTIONS (2)
  - LEG AMPUTATION [None]
  - SKIN ULCER [None]
